FAERS Safety Report 5333548-6 (Version None)
Quarter: 2007Q2

REPORT INFORMATION
  Report Type: 
  Country: None (occurrence: None)
  Receive Date: 20070524
  Receipt Date: 20070516
  Transmission Date: 20071010
  Serious: Yes (Other)
  Sender: FDA-Public Use
  Company Number: US-JNJFOC-20070504455

PATIENT
  Sex: Female
  Weight: 49.9 kg

DRUGS (6)
  1. DURAGESIC-100 [Suspect]
     Indication: BACK PAIN
     Route: 062
  2. ENDOCET [Suspect]
     Indication: BACK PAIN
     Route: 048
  3. SOMA [Concomitant]
     Indication: PAIN
     Route: 048
  4. LUBRIDERM [Concomitant]
     Indication: PAIN
     Route: 062
  5. ATENOLOL [Concomitant]
     Route: 048
  6. LISINOPRIL [Concomitant]
     Route: 048

REACTIONS (6)
  - APPLICATION SITE RASH [None]
  - DEPRESSION [None]
  - DIARRHOEA [None]
  - HYPERHIDROSIS [None]
  - TOOTH FRACTURE [None]
  - TREMOR [None]
